FAERS Safety Report 10657407 (Version 1)
Quarter: 2014Q4

REPORT INFORMATION
  Report Type: Other
  Country: KR (occurrence: KR)
  Receive Date: 20141217
  Receipt Date: 20141217
  Transmission Date: 20150529
  Serious: Yes (Other)
  Sender: FDA-Public Use
  Company Number: KR-ENDO PHARMACEUTICALS INC-METH20140020

PATIENT

DRUGS (2)
  1. METHYLPREDNISOLONE TABLETS [Suspect]
     Active Substance: METHYLPREDNISOLONE
     Indication: DEAFNESS NEUROSENSORY
     Dosage: 24MG DAILY FOR 4 DAYS
     Route: 048
  2. METHYLPREDNISOLONE TABLETS [Suspect]
     Active Substance: METHYLPREDNISOLONE
     Dosage: 8MG EVERY 2 DAYS
     Route: 048

REACTIONS (2)
  - Pulmonary oedema [Unknown]
  - Upper gastrointestinal haemorrhage [Unknown]
